FAERS Safety Report 4717682-7 (Version None)
Quarter: 2005Q3

REPORT INFORMATION
  Report Type: 
  Country: None (occurrence: None)
  Receive Date: 20050715
  Receipt Date: 20050629
  Transmission Date: 20060218
  Serious: Yes (Hospitalization)
  Sender: FDA-Public Use
  Company Number: CTI_0818_2005

PATIENT
  Age: 52 Year
  Sex: Male
  Weight: 64.09 kg

DRUGS (3)
  1. ZILEUTON [Suspect]
     Indication: NON-SMALL CELL LUNG CANCER
     Dosage: 600 MG QID PO
     Route: 048
     Dates: start: 20040606, end: 20040615
  2. GEMCITABINE [Suspect]
     Indication: NON-SMALL CELL LUNG CANCER
     Dosage: 1730 MG QWK IV
     Route: 042
     Dates: start: 20040606, end: 20040615
  3. CARBOPLATIN [Suspect]
     Indication: NON-SMALL CELL LUNG CANCER
     Dosage: 677 MG ONCE IV
     Route: 042
     Dates: start: 20050606, end: 20050606

REACTIONS (10)
  - ABASIA [None]
  - BLOOD CREATINE PHOSPHOKINASE INCREASED [None]
  - MYALGIA [None]
  - MYOSITIS [None]
  - NAUSEA [None]
  - PAIN IN EXTREMITY [None]
  - PNEUMONIA [None]
  - SINUS TACHYCARDIA [None]
  - VOMITING [None]
  - WHITE BLOOD CELL COUNT INCREASED [None]
